FAERS Safety Report 14902334 (Version 1)
Quarter: 2018Q2

REPORT INFORMATION
  Report Type: Spontaneous
  Country: US (occurrence: US)
  Receive Date: 20180516
  Receipt Date: 20180516
  Transmission Date: 20180711
  Serious: No
  Sender: FDA-Public Use
  Company Number: US-NEPHRON PHARMACEUTICALS CORPORATION-2047931

PATIENT
  Age: 84 Year
  Sex: Female
  Weight: 57.73 kg

DRUGS (1)
  1. ALBUTEROL SULFATE INHALATION SOLUTION, 0.5% [Suspect]
     Active Substance: ALBUTEROL SULFATE
     Indication: BRONCHITIS
     Route: 055

REACTIONS (3)
  - Throat irritation [Recovering/Resolving]
  - Blister [Recovering/Resolving]
  - Cough [Recovered/Resolved]

NARRATIVE: CASE EVENT DATE: 20180514
